FAERS Safety Report 20373699 (Version 1)
Quarter: 2022Q1

REPORT INFORMATION
  Report Type: Spontaneous
  Country: NL (occurrence: NL)
  Receive Date: 20220125
  Receipt Date: 20220125
  Transmission Date: 20220423
  Serious: Yes (Death, Other)
  Sender: FDA-Public Use
  Company Number: NL-RANBAXY-2014RR-83573

PATIENT
  Age: 70 Year
  Sex: Female

DRUGS (5)
  1. VENLAFAXINE [Interacting]
     Active Substance: VENLAFAXINE HYDROCHLORIDE
     Indication: Affective disorder
     Dosage: 75 MG, BID
     Route: 065
  2. METHYLENE BLUE [Interacting]
     Active Substance: METHYLENE BLUE
     Indication: Product used for unknown indication
     Dosage: 9 MG/KG, UNK
     Route: 042
  3. PROPOFOL [Concomitant]
     Active Substance: PROPOFOL
     Indication: Induction of anaesthesia
     Dosage: UNK
     Route: 065
  4. SEVOFLURANE [Concomitant]
     Active Substance: SEVOFLURANE
     Indication: Maintenance of anaesthesia
     Dosage: UNK
     Route: 065
  5. ATRACURIUM [Concomitant]
     Active Substance: ATRACURIUM
     Indication: Hypotonia
     Dosage: UNK
     Route: 065

REACTIONS (5)
  - Serotonin syndrome [Fatal]
  - Drug interaction [Fatal]
  - Circulatory collapse [Fatal]
  - Respiratory failure [Fatal]
  - Haemodynamic instability [Fatal]
